FAERS Safety Report 7571592-9 (Version None)
Quarter: 2011Q2

REPORT INFORMATION
  Report Type: 
  Country: None (occurrence: None)
  Receive Date: 20110624
  Receipt Date: 20110613
  Transmission Date: 20111010
  Serious: Yes (Hospitalization)
  Sender: FDA-Public Use
  Company Number: US-JNJFOC-20110406314

PATIENT
  Sex: Male

DRUGS (24)
  1. ABIRATERONE ACETATE [Suspect]
     Indication: PROSTATE CANCER METASTATIC
     Route: 048
     Dates: start: 20101029, end: 20110411
  2. CALCIUM CARBONATE [Concomitant]
     Indication: GENERAL PHYSICAL CONDITION
     Route: 048
     Dates: start: 20050510
  3. ESCITALOPRAM [Concomitant]
     Indication: ANXIETY
     Route: 048
     Dates: start: 20050510
  4. ACETAMINOPHEN [Concomitant]
     Indication: PELVIC PAIN
     Route: 048
     Dates: start: 20080811
  5. TRAMADOL HCL [Concomitant]
     Indication: CANCER PAIN
     Route: 048
     Dates: start: 20101001
  6. ACETAMINOPHEN [Concomitant]
     Indication: BACK PAIN
     Route: 048
     Dates: start: 20080811
  7. MULTI-VITAMINS [Concomitant]
     Indication: GENERAL PHYSICAL CONDITION
     Route: 048
     Dates: start: 20061128
  8. ENOXAPARIN SODIUM [Concomitant]
     Indication: PULMONARY EMBOLISM
     Dosage: 100 MG/ML SUBCUTANEOUS SOLUTION
     Route: 058
     Dates: start: 20101015
  9. PREDNISONE [Suspect]
     Route: 048
     Dates: start: 20101029
  10. VITAMIN D [Concomitant]
     Indication: GENERAL PHYSICAL CONDITION
     Route: 048
     Dates: start: 20050510
  11. ASCORBIC ACID [Concomitant]
     Indication: GENERAL PHYSICAL CONDITION
     Route: 048
     Dates: start: 20070410
  12. HYDROCODONE BITARTRATE AND ACETAMINOPHEN [Concomitant]
     Indication: CANCER PAIN
     Route: 048
     Dates: start: 20090401
  13. AUGMENTIN '125' [Concomitant]
     Indication: CANCER PAIN
     Route: 048
     Dates: start: 20110301
  14. ABIRATERONE ACETATE [Suspect]
     Route: 048
  15. PREDNISONE [Suspect]
     Indication: PROSTATE CANCER METASTATIC
     Route: 048
     Dates: start: 20080818
  16. FISH OIL [Concomitant]
     Indication: GENERAL PHYSICAL CONDITION
     Route: 048
     Dates: start: 20080304
  17. LEUPROLIDE ACETATE [Concomitant]
     Indication: PROSTATE CANCER
     Route: 030
     Dates: start: 20040213
  18. LEUPROLIDE ACETATE [Concomitant]
     Indication: HORMONE THERAPY
     Route: 030
     Dates: start: 20040213
  19. LEUPROLIDE ACETATE [Concomitant]
     Route: 030
     Dates: start: 20080818
  20. MILK OF MAGNESIA TAB [Concomitant]
     Indication: ABDOMINAL PAIN
     Route: 048
     Dates: start: 20110401
  21. EPIVIR-HBV [Concomitant]
     Indication: HEPATITIS B
     Route: 048
     Dates: start: 20051227
  22. ESCITALOPRAM [Concomitant]
     Indication: DEPRESSION
     Route: 048
     Dates: start: 20050510
  23. LEUPROLIDE ACETATE [Concomitant]
     Route: 030
     Dates: start: 20080818
  24. GABAPENTIN [Concomitant]
     Indication: CANCER PAIN
     Route: 048
     Dates: start: 20101223

REACTIONS (2)
  - FALL [None]
  - SEPSIS [None]
